FAERS Safety Report 4615092-4 (Version None)
Quarter: 2005Q1

REPORT INFORMATION
  Report Type: 
  Country: None (occurrence: None)
  Receive Date: 20050318
  Receipt Date: 20050318
  Transmission Date: 20050727
  Serious: Yes (Hospitalization)
  Sender: FDA-Public Use
  Company Number: None

PATIENT
  Sex: Male
  Weight: 63.5036 kg

DRUGS (16)
  1. VASOTEC [Suspect]
     Indication: HYPERTENSION
     Dosage: 20 MG PO BID
     Route: 048
  2. ADVAIR [Concomitant]
  3. LANOXIN [Concomitant]
  4. PROTONIX [Concomitant]
  5. ASPIRIN [Concomitant]
  6. TYL #3 [Concomitant]
  7. FOLIC ACID [Concomitant]
  8. LASIX [Concomitant]
  9. ELAVIL [Concomitant]
  10. COREG [Concomitant]
  11. ZOCOR [Concomitant]
  12. ALBUTEROL [Concomitant]
  13. BETAXOLOL [Concomitant]
  14. ALPHAGAN [Concomitant]
  15. COSOPT [Concomitant]
  16. XALATAN [Concomitant]

REACTIONS (1)
  - RENAL FAILURE ACUTE [None]
